FAERS Safety Report 20584541 (Version 3)
Quarter: 2025Q1

REPORT INFORMATION
  Report Type: Report from Study
  Country: EG (occurrence: EG)
  Receive Date: 20220311
  Receipt Date: 20250116
  Transmission Date: 20250409
  Serious: Yes (Other)
  Sender: NOVARTIS
  Company Number: EG-NOVARTISPH-NVSC2022EG049279

PATIENT
  Sex: Male
  Weight: 100 kg

DRUGS (27)
  1. ENTRESTO [Suspect]
     Active Substance: SACUBITRIL\VALSARTAN
     Indication: Cardiac failure
     Dosage: 100 MG, BID
     Route: 048
  2. ENTRESTO [Suspect]
     Active Substance: SACUBITRIL\VALSARTAN
     Dosage: 100 MG, BID
     Route: 048
     Dates: start: 20210715
  3. ENTRESTO [Suspect]
     Active Substance: SACUBITRIL\VALSARTAN
     Route: 048
  4. ENTRESTO [Suspect]
     Active Substance: SACUBITRIL\VALSARTAN
     Dosage: 50 MG, BID
     Route: 048
     Dates: start: 202107, end: 2022
  5. ENTRESTO [Suspect]
     Active Substance: SACUBITRIL\VALSARTAN
     Dosage: 100 MG, QD
     Route: 048
  6. ENTRESTO [Suspect]
     Active Substance: SACUBITRIL\VALSARTAN
     Dosage: 100 MG, BID (1 TABLET OF 100 MG)
     Route: 048
     Dates: start: 2022
  7. WARFARIN SODIUM [Concomitant]
     Active Substance: WARFARIN SODIUM
     Indication: Anticoagulant therapy
     Dosage: 3 MG, QD (TABLET, 20 YEARS AGO)
     Route: 048
  8. JANUMET [Concomitant]
     Active Substance: METFORMIN HYDROCHLORIDE\SITAGLIPTIN PHOSPHATE
     Indication: Diabetes mellitus
     Dosage: 1 DOSAGE FORM, BID (TABLET, 10/1000 MG) 20 YEARS AGO
     Route: 048
  9. JANUMET [Concomitant]
     Active Substance: METFORMIN HYDROCHLORIDE\SITAGLIPTIN PHOSPHATE
     Dosage: TWICE DAILY 50,000 UNITS (TABLET, A LONGTIME AGO)
     Route: 048
  10. DAPAGLIFLOZIN [Concomitant]
     Active Substance: DAPAGLIFLOZIN
     Indication: Diabetes mellitus
     Dosage: 10 MG, QD (TABLET, 20 YEARS AGO)
     Route: 048
     Dates: start: 2021
  11. LANTUS [Concomitant]
     Active Substance: INSULIN GLARGINE
     Indication: Diabetes mellitus
     Route: 065
  12. NOVORAPID [Concomitant]
     Active Substance: INSULIN ASPART
     Indication: Diabetes mellitus
     Route: 065
  13. NOVORAPID [Concomitant]
     Active Substance: INSULIN ASPART
     Dosage: DURING MEAL TWICE DAILY 14 OR 15 UNITS
     Route: 065
  14. BISOPROLOL FUMARATE [Concomitant]
     Active Substance: BISOPROLOL FUMARATE
     Indication: Hypertension
     Dosage: 2.5 MG, BID (TABLET, 7 MONTHS AGO)
     Route: 048
     Dates: start: 2021
  15. IVABRADINE HYDROCHLORIDE [Concomitant]
     Active Substance: IVABRADINE HYDROCHLORIDE
     Indication: Hypertension
     Dosage: 5 MG, BID (TABLET, 7 MONTHS AGO)
     Route: 048
  16. TORSEMIDE [Concomitant]
     Active Substance: TORSEMIDE
     Indication: Diuretic therapy
     Dosage: 5 MG, TID (5 MG, TABLET)
     Route: 048
     Dates: start: 2021
  17. CIPRALEX [Concomitant]
     Active Substance: ESCITALOPRAM OXALATE
     Indication: Nervous system disorder
     Dosage: 10 MG, QD (TABLET, 6 YEARS AGO)
     Route: 048
  18. CORDARONE [Concomitant]
     Active Substance: AMIODARONE HYDROCHLORIDE
     Indication: Hypertension
     Dosage: 200 MG, QD (TABLET, 7 MONTHS AGO)
     Route: 048
  19. LASIX [Concomitant]
     Active Substance: FUROSEMIDE
     Indication: Diuretic therapy
     Route: 048
     Dates: end: 2021
  20. WARFARIN SODIUM [Concomitant]
     Active Substance: WARFARIN SODIUM
     Indication: Product used for unknown indication
     Route: 065
  21. WARFARIN SODIUM [Concomitant]
     Active Substance: WARFARIN SODIUM
     Route: 065
  22. RAMIPRIL [Concomitant]
     Active Substance: RAMIPRIL
     Indication: Hypertension
     Dosage: 1 DOSAGE FORM, QD
     Route: 065
     Dates: start: 2018
  23. LIBRAX [Concomitant]
     Active Substance: CHLORDIAZEPOXIDE HYDROCHLORIDE\CLIDINIUM BROMIDE
     Indication: Functional gastrointestinal disorder
     Route: 048
  24. FENOFIBRATE [Concomitant]
     Active Substance: FENOFIBRATE
     Indication: Blood cholesterol abnormal
     Dosage: UNK, QD (TABLET, 20 YEARS AGO)()
     Route: 048
  25. Cholerose plus [Concomitant]
     Indication: Blood cholesterol abnormal
     Dosage: UNK, QD (TABLET, 20 YEARS AGO)
     Route: 048
  26. Dapablix [Concomitant]
     Indication: Diabetes mellitus
     Dosage: 10 MG, QD
     Route: 048
  27. BISOPROLOL FUMARATE [Concomitant]
     Active Substance: BISOPROLOL FUMARATE
     Indication: Cardiac disorder
     Dosage: 2.5 MG, BID (TABLET, 20-30 YEARS AGO)
     Route: 048

REACTIONS (9)
  - Coronavirus infection [Recovered/Resolved]
  - Pain [Recovered/Resolved]
  - Epistaxis [Not Recovered/Not Resolved]
  - International normalised ratio increased [Not Recovered/Not Resolved]
  - Fatigue [Not Recovered/Not Resolved]
  - Ejection fraction decreased [Unknown]
  - Blood creatinine increased [Recovering/Resolving]
  - Product dispensing issue [Unknown]
  - Inappropriate schedule of product administration [Unknown]

NARRATIVE: CASE EVENT DATE: 20220101
